FAERS Safety Report 16803329 (Version 5)
Quarter: 2021Q1

REPORT INFORMATION
  Report Type: Spontaneous
  Country: SK (occurrence: SK)
  Receive Date: 20190913
  Receipt Date: 20210209
  Transmission Date: 20210419
  Serious: Yes (Life-Threatening, Hospitalization, Disabling, Other)
  Sender: FDA-Public Use
  Company Number: SK-BEH-2019106699

PATIENT
  Sex: Female

DRUGS (34)
  1. METHYLPREDNISOLONE. [Suspect]
     Active Substance: METHYLPREDNISOLONE
     Dosage: UNK
     Route: 064
     Dates: start: 20180221, end: 20180223
  2. PREDNISONE. [Suspect]
     Active Substance: PREDNISONE
     Dosage: UNK
     Route: 064
     Dates: start: 20180222, end: 20180227
  3. VITAMIN B COMPLEX [Suspect]
     Active Substance: CYANOCOBALAMIN\DEXPANTHENOL\NIACINAMIDE\PYRIDOXINE HYDROCHLORIDE\RIBOFLAVIN 5^-PHOSPHATE SODIUM\THIAMINE HYDROCHLORIDE\VITAMIN B COMPLEX
     Dosage: UNK
     Dates: start: 20180326
  4. MAGNESIUM LACTATE [Suspect]
     Active Substance: MAGNESIUM LACTATE
     Dosage: UNK
     Route: 064
     Dates: start: 20180321, end: 20180405
  5. PRIVIGEN [Suspect]
     Active Substance: HUMAN IMMUNOGLOBULIN G
     Dosage: UNK
     Route: 064
  6. BISULEPIN [Suspect]
     Active Substance: BISULEPIN
     Dosage: UNK
     Route: 064
     Dates: start: 20180327, end: 20180327
  7. ALBUMIN [Suspect]
     Active Substance: ALBUMIN HUMAN
     Dosage: UNK
     Route: 064
     Dates: start: 20180327, end: 20180329
  8. CEFOTAXIME [Suspect]
     Active Substance: CEFOTAXIME SODIUM
     Dosage: UNK
     Route: 064
     Dates: start: 20180319, end: 20180329
  9. BISOPROLOL FUMARATE. [Suspect]
     Active Substance: BISOPROLOL FUMARATE
     Dosage: UNK
     Route: 064
     Dates: start: 20180223, end: 20180327
  10. AMINOMETHYLBENZOIC ACID [Suspect]
     Active Substance: AMINOMETHYLBENZOIC ACID
     Dosage: UNK
     Route: 064
     Dates: start: 20180227, end: 20180311
  11. HYDROXYCHLOROQUINE [Suspect]
     Active Substance: HYDROXYCHLOROQUINE
     Dosage: UNK
     Dates: start: 20180222
  12. FLEBOGAMMA DIF [Suspect]
     Active Substance: HUMAN IMMUNOGLOBULIN G
     Dosage: UNK
     Route: 064
  13. ORNIDAZOLE [Suspect]
     Active Substance: ORNIDAZOLE
     Dosage: UNK
     Route: 064
  14. OMEPRAZOLE. [Suspect]
     Active Substance: OMEPRAZOLE
     Dosage: UNK
     Dates: start: 20180222
  15. DEXAMETHASONE. [Suspect]
     Active Substance: DEXAMETHASONE
     Dosage: UNK
     Route: 064
     Dates: start: 20180228, end: 20180302
  16. DEXAMETHASONE. [Suspect]
     Active Substance: DEXAMETHASONE
     Dosage: UNK
     Route: 064
     Dates: start: 20180309, end: 20190504
  17. VULMIZOLIN [Suspect]
     Active Substance: CEFAZOLIN SODIUM
     Dosage: UNK
     Route: 064
  18. CEFIXIME. [Suspect]
     Active Substance: CEFIXIME
     Dosage: UNK
     Route: 064
  19. FLUCONAZOLE. [Suspect]
     Active Substance: FLUCONAZOLE
     Dosage: UNK
     Route: 064
     Dates: start: 20180227, end: 20180320
  20. CEFOTAXIME [Suspect]
     Active Substance: CEFOTAXIME SODIUM
     Dosage: UNK
     Route: 064
     Dates: start: 20180412, end: 20180427
  21. NADROPARINE [Suspect]
     Active Substance: NADROPARIN
     Dosage: UNK
     Route: 064
     Dates: start: 20180222, end: 20180226
  22. PARACETAMOL [Suspect]
     Active Substance: ACETAMINOPHEN
     Dosage: UNK
     Route: 064
     Dates: start: 20180222, end: 20180403
  23. METOPROLOL TARTRATE. [Suspect]
     Active Substance: METOPROLOL TARTRATE
     Dosage: UNK
     Route: 064
  24. POTASSIUM CHLORIDE. [Suspect]
     Active Substance: POTASSIUM CHLORIDE
     Dosage: UNK
     Route: 064
     Dates: start: 20180314
  25. VITAMIN K [Suspect]
     Active Substance: PHYTONADIONE
     Dosage: UNK
     Route: 064
     Dates: start: 20180227, end: 20180309
  26. PRIVIGEN [Suspect]
     Active Substance: HUMAN IMMUNOGLOBULIN G
     Indication: PRODUCT USED FOR UNKNOWN INDICATION
     Dosage: UNK
     Route: 064
  27. PENICILLIN G [BENZYLPENICILLIN SODIUM] [Suspect]
     Active Substance: PENICILLIN G SODIUM
     Dosage: UNK
     Route: 064
     Dates: start: 20180224, end: 20180308
  28. HYDROCORTISONE. [Suspect]
     Active Substance: HYDROCORTISONE
     Dosage: UNK
     Route: 064
     Dates: start: 20180303, end: 20180309
  29. METHYLPREDNISOLONE. [Suspect]
     Active Substance: METHYLPREDNISOLONE
     Dosage: UNK
     Route: 064
     Dates: start: 20180505, end: 20180509
  30. PREDNISONE. [Suspect]
     Active Substance: PREDNISONE
     Dosage: UNK
     Route: 064
     Dates: start: 20180509
  31. CALCIUM CARBONATE. [Suspect]
     Active Substance: CALCIUM CARBONATE
     Dosage: UNK
     Route: 064
     Dates: start: 20180223
  32. FOLIC ACID. [Suspect]
     Active Substance: FOLIC ACID
     Dosage: UNK
     Route: 064
     Dates: start: 20180222
  33. VITAMIN D [COLECALCIFEROL] [Suspect]
     Active Substance: CHOLECALCIFEROL
     Dosage: UNK
     Route: 064
     Dates: start: 20180222
  34. ETAMSYLATE [Suspect]
     Active Substance: ETHAMSYLATE
     Dosage: UNK
     Route: 064
     Dates: start: 20180222, end: 20180413

REACTIONS (5)
  - Premature baby [Recovered/Resolved]
  - Oligohydramnios [Recovered/Resolved]
  - No adverse event [Unknown]
  - Maternal exposure during pregnancy [Unknown]
  - Foetal growth restriction [Recovered/Resolved]

NARRATIVE: CASE EVENT DATE: 20180404
